FAERS Safety Report 9076521 (Version 1)
Quarter: 2013Q1

REPORT INFORMATION
  Report Type: Spontaneous
  Country: US (occurrence: US)
  Receive Date: 20130129
  Receipt Date: 20130129
  Transmission Date: 20140127
  Serious: No
  Sender: FDA-Public Use
  Company Number: US-ABBOTT-12P-163-0948017-00

PATIENT
  Sex: Female
  Weight: 167.07 kg

DRUGS (3)
  1. HUMIRA 40 MG/ 0.8 ML PRE-FILLED SYRINGE [Suspect]
     Indication: RHEUMATOID ARTHRITIS
     Route: 058
     Dates: start: 200602
  2. BYSTOLIC [Concomitant]
     Indication: HYPERTENSION
  3. NORCO [Concomitant]
     Indication: PAIN

REACTIONS (1)
  - Skin lesion [Recovered/Resolved]
